FAERS Safety Report 6475560-X (Version None)
Quarter: 2009Q4

REPORT INFORMATION
  Report Type: 
  Country: None (occurrence: None)
  Receive Date: 20091204
  Receipt Date: 20091124
  Transmission Date: 20100525
  Serious: Yes (Other)
  Sender: FDA-Public Use
  Company Number: US-PFIZER INC-2009305169

PATIENT
  Sex: Female
  Weight: 92.079 kg

DRUGS (5)
  1. LIPITOR [Suspect]
     Route: 048
     Dates: start: 20081101, end: 20091101
  2. COZAAR [Concomitant]
     Route: 048
  3. BABY ASPIRIN [Concomitant]
     Route: 048
     Dates: start: 19930101
  4. NEXIUM [Concomitant]
     Route: 048
  5. SOTALOL HCL [Concomitant]
     Route: 048

REACTIONS (7)
  - ARTHRALGIA [None]
  - HEPATOMEGALY [None]
  - JOINT SWELLING [None]
  - LIVER DISORDER [None]
  - MUSCULOSKELETAL CHEST PAIN [None]
  - NAUSEA [None]
  - WEIGHT DECREASED [None]
